FAERS Safety Report 15481093 (Version 3)
Quarter: 2019Q1

REPORT INFORMATION
  Report Type: Spontaneous
  Country: US (occurrence: US)
  Receive Date: 20181010
  Receipt Date: 20190107
  Transmission Date: 20190417
  Serious: No
  Sender: FDA-Public Use
  Company Number: US-SA-2018SA276895

PATIENT
  Age: 46 Year
  Sex: Male

DRUGS (1)
  1. AUBAGIO [Suspect]
     Active Substance: TERIFLUNOMIDE
     Indication: MULTIPLE SCLEROSIS
     Dosage: 14 MG, QD
     Route: 048
     Dates: start: 20180827

REACTIONS (5)
  - Pain [Unknown]
  - Drug ineffective [Unknown]
  - Fatigue [Unknown]
  - Tension headache [Unknown]
  - Asthenia [Unknown]
